FAERS Safety Report 6334745-3 (Version None)
Quarter: 2009Q3

REPORT INFORMATION
  Report Type: 
  Country: None (occurrence: None)
  Receive Date: 20090831
  Receipt Date: 20090817
  Transmission Date: 20100115
  Serious: Yes (Hospitalization, Other)
  Sender: FDA-Public Use
  Company Number: PHEH2009US02237

PATIENT
  Age: 13 Year
  Sex: Male
  Weight: 35.374 kg

DRUGS (2)
  1. FOCALIN XR [Suspect]
     Indication: ATTENTION DEFICIT/HYPERACTIVITY DISORDER
     Dosage: 20 MG, UNK
  2. FOCALIN XR [Suspect]
     Dosage: 30 MG, QD

REACTIONS (17)
  - ABDOMINAL PAIN [None]
  - AGGRESSION [None]
  - ASTHENIA [None]
  - BACK PAIN [None]
  - DECREASED APPETITE [None]
  - DEHYDRATION [None]
  - DYSPHEMIA [None]
  - EDUCATIONAL PROBLEM [None]
  - GROWTH RETARDATION [None]
  - HALLUCINATION [None]
  - INCORRECT DOSE ADMINISTERED [None]
  - INSOMNIA [None]
  - SLEEP TERROR [None]
  - SOCIAL PROBLEM [None]
  - SPEECH DISORDER [None]
  - THINKING ABNORMAL [None]
  - VISUAL ACUITY REDUCED [None]
